FAERS Safety Report 6202047-1 (Version None)
Quarter: 2009Q2

REPORT INFORMATION
  Report Type: 
  Country: None (occurrence: None)
  Receive Date: 20090526
  Receipt Date: 20090515
  Transmission Date: 20091009
  Serious: Yes (Hospitalization)
  Sender: FDA-Public Use
  Company Number: B0570372A

PATIENT
  Age: 44 Year
  Sex: Male

DRUGS (2)
  1. VALTREX [Suspect]
     Route: 048
  2. CARBAMAZEPINE [Suspect]
     Route: 048

REACTIONS (1)
  - ERYTHEMA MULTIFORME [None]
